FAERS Safety Report 7611097-X (Version None)
Quarter: 2011Q3

REPORT INFORMATION
  Report Type: 
  Country: None (occurrence: None)
  Receive Date: 20110715
  Receipt Date: 20110706
  Transmission Date: 20111222
  Serious: Yes (Other)
  Sender: FDA-Public Use
  Company Number: US-BAYER-2011-058827

PATIENT
  Sex: Female

DRUGS (4)
  1. VITAMIN K TAB [Concomitant]
  2. COUMADIN [Concomitant]
     Dosage: UNK
     Dates: end: 20110518
  3. VITAMIN K TAB [Concomitant]
     Indication: INTERNATIONAL NORMALISED RATIO INCREASED
     Dosage: UNK
     Dates: start: 20110519, end: 20110519
  4. AVELOX [Suspect]
     Dosage: DAILY DOSE 400 MG
     Route: 042
     Dates: start: 20110520, end: 20110522

REACTIONS (1)
  - INTERNATIONAL NORMALISED RATIO INCREASED [None]
